FAERS Safety Report 15894600 (Version 2)
Quarter: 2019Q1

REPORT INFORMATION
  Report Type: Spontaneous
  Country: US (occurrence: US)
  Receive Date: 20190131
  Receipt Date: 20190206
  Transmission Date: 20190417
  Serious: Yes (Hospitalization)
  Sender: FDA-Public Use
  Company Number: US-TEVA-2019-US-1004325

PATIENT
  Age: 72 Year
  Sex: Male

DRUGS (10)
  1. BCG [Suspect]
     Active Substance: BCG VACCINE
     Indication: BLADDER TRANSITIONAL CELL CARCINOMA
     Route: 043
  2. METOPROLOL. [Concomitant]
     Active Substance: METOPROLOL
     Route: 065
  3. ROSUVASTATIN. [Concomitant]
     Active Substance: ROSUVASTATIN
     Route: 065
  4. METHYLPREDNISOLONE. [Concomitant]
     Active Substance: METHYLPREDNISOLONE
     Route: 065
  5. ISONIAZID. [Suspect]
     Active Substance: ISONIAZID
     Route: 065
  6. INH INSULIN [Concomitant]
     Indication: TYPE 2 DIABETES MELLITUS
     Route: 065
  7. LOSARTAN. [Concomitant]
     Active Substance: LOSARTAN
     Route: 065
  8. RIFAMPICIN [Interacting]
     Active Substance: RIFAMPIN
     Route: 065
  9. METFORMIN [Concomitant]
     Active Substance: METFORMIN HYDROCHLORIDE
     Route: 065
  10. ETHAMBUTOL [Concomitant]
     Active Substance: ETHAMBUTOL HYDROCHLORIDE
     Route: 065

REACTIONS (3)
  - Granulomatous liver disease [Recovered/Resolved]
  - Granuloma [Recovered/Resolved]
  - Drug interaction [Recovered/Resolved]
